FAERS Safety Report 15647457 (Version 2)
Quarter: 2019Q3

REPORT INFORMATION
  Report Type: Report from Study
  Country: US (occurrence: US)
  Receive Date: 20181122
  Receipt Date: 20190729
  Transmission Date: 20191004
  Serious: Yes (Other)
  Sender: FDA-Public Use
  Company Number: US-ROCHE-2213884

PATIENT
  Age: 26 Year
  Sex: Male
  Weight: 102.15 kg

DRUGS (4)
  1. TESTOSTERONE. [Concomitant]
     Active Substance: TESTOSTERONE
     Indication: KLINEFELTER^S SYNDROME
     Route: 065
     Dates: start: 2005
  2. OCREVUS [Suspect]
     Active Substance: OCRELIZUMAB
     Indication: RELAPSING-REMITTING MULTIPLE SCLEROSIS
     Route: 042
     Dates: start: 201712
  3. OCREVUS [Suspect]
     Active Substance: OCRELIZUMAB
     Route: 042
     Dates: start: 20190715
  4. LAMICTAL [Concomitant]
     Active Substance: LAMOTRIGINE
     Indication: DEPRESSION
     Route: 065

REACTIONS (17)
  - Wheezing [Recovered/Resolved]
  - Sputum discoloured [Recovered/Resolved]
  - Vasodilatation [Recovered/Resolved]
  - Heart rate increased [Recovered/Resolved]
  - Dizziness [Not Recovered/Not Resolved]
  - Migraine [Recovered/Resolved]
  - Herpes zoster [Recovered/Resolved]
  - Vein discolouration [Recovered/Resolved]
  - Phlebitis [Recovered/Resolved]
  - Dyspnoea [Recovered/Resolved]
  - Headache [Not Recovered/Not Resolved]
  - Dysarthria [Not Recovered/Not Resolved]
  - Vascular pain [Recovered/Resolved]
  - Fear [Recovered/Resolved]
  - Anxiety [Not Recovered/Not Resolved]
  - Cough [Recovered/Resolved]
  - Nausea [Not Recovered/Not Resolved]

NARRATIVE: CASE EVENT DATE: 201809
